FAERS Safety Report 10877249 (Version 2)
Quarter: 2015Q2

REPORT INFORMATION
  Report Type: Spontaneous
  Country: FR (occurrence: FR)
  Receive Date: 20150302
  Receipt Date: 20150413
  Transmission Date: 20150821
  Serious: Yes (Life-Threatening, Hospitalization)
  Sender: FDA-Public Use
  Company Number: FR-TEVA-542400ISR

PATIENT
  Age: 65 Year
  Sex: Male

DRUGS (9)
  1. VELBE [Suspect]
     Active Substance: VINBLASTINE SULFATE
     Indication: HODGKIN^S DISEASE STAGE IV
     Dosage: ONE SINGLE DOSE
     Route: 041
     Dates: start: 20141217
  2. DETICENE 100 MG [Suspect]
     Active Substance: DACARBAZINE
     Indication: HODGKIN^S DISEASE STAGE IV
     Dosage: POWDER AND SOLVENT FOR SOLUTION FOR INFUSION, ONE SINGLE DOSE
     Route: 041
     Dates: start: 20141217
  3. DOXORUBICINE TEVA 200MG/100ML [Suspect]
     Active Substance: DOXORUBICIN
     Indication: HODGKIN^S DISEASE STAGE IV
     Dosage: ONE SINGLE DOSE
     Route: 041
     Dates: start: 20141217
  4. EXFORGE [Concomitant]
     Active Substance: AMLODIPINE BESYLATE\VALSARTAN
  5. ONDANSETRON [Concomitant]
     Active Substance: ONDANSETRON
  6. VAXIGRIP [Suspect]
     Active Substance: INFLUENZA VIRUS VACCINE
     Route: 058
     Dates: start: 20141215
  7. EMEND [Concomitant]
     Active Substance: APREPITANT
  8. BLEOMYCINE BELLON 15 MG POUDRE POUR SOLUTION INJECTABLE [Suspect]
     Active Substance: BLEOMYCIN SULFATE
     Indication: HODGKIN^S DISEASE STAGE IV
     Dosage: ONE SINGLE DOSE
     Route: 041
     Dates: start: 20141217
  9. SOLU-MEDROL [Concomitant]
     Active Substance: METHYLPREDNISOLONE SODIUM SUCCINATE

REACTIONS (2)
  - Seizure [Recovered/Resolved]
  - Status epilepticus [Recovered/Resolved]

NARRATIVE: CASE EVENT DATE: 20141218
